FAERS Safety Report 25287878 (Version 1)
Quarter: 2025Q2

REPORT INFORMATION
  Report Type: Spontaneous
  Country: GB (occurrence: GB)
  Receive Date: 20250509
  Receipt Date: 20250509
  Transmission Date: 20250717
  Serious: Yes (Life-Threatening, Hospitalization, Other)
  Sender: ADVANZ PHARMA
  Company Number: GB-MHRA-35369667

PATIENT

DRUGS (11)
  1. PREDNISOLONE [Suspect]
     Active Substance: PREDNISOLONE
  2. PREDNISOLONE [Suspect]
     Active Substance: PREDNISOLONE
  3. PREDNISOLONE [Suspect]
     Active Substance: PREDNISOLONE
  4. PREDNISOLONE [Suspect]
     Active Substance: PREDNISOLONE
  5. PREDNISOLONE [Suspect]
     Active Substance: PREDNISOLONE
  6. PREDNISOLONE [Suspect]
     Active Substance: PREDNISOLONE
  7. PREDNISOLONE [Suspect]
     Active Substance: PREDNISOLONE
  8. PREDNISOLONE [Suspect]
     Active Substance: PREDNISOLONE
     Dates: start: 20241107
  9. Colecalciferol + Calcium carbonate}Colecalciferol 200unit / Calcium ca [Concomitant]
  10. Octasa 800 mg MR gastro-resistant tablets [Concomitant]
  11. ENSURE PLUS Juce (Orange) Liquid [Concomitant]
     Route: 048

REACTIONS (1)
  - Diabetic ketoacidosis [Recovered/Resolved]

NARRATIVE: CASE EVENT DATE: 20241122
